FAERS Safety Report 13178506 (Version 1)
Quarter: 2017Q1

REPORT INFORMATION
  Report Type: Spontaneous
  Country: US (occurrence: US)
  Receive Date: 20170201
  Receipt Date: 20170201
  Transmission Date: 20170428
  Serious: Yes (Disabling)
  Sender: FDA-Public Use
  Company Number: None

PATIENT
  Age: 56 Year
  Sex: Female
  Weight: 87.75 kg

DRUGS (4)
  1. DIMAGNESIUM MALATE [Concomitant]
  2. SUMITRIPTAN [Concomitant]
  3. BOTOX [Suspect]
     Active Substance: ONABOTULINUMTOXINA
     Indication: MIGRAINE
     Dosage: ?          QUANTITY:31 INJECTION(S);OTHER FREQUENCY:EVERY 3 MONTHS;?
     Route: 058
  4. VITAMIN B2 [Concomitant]
     Active Substance: RIBOFLAVIN

REACTIONS (9)
  - Irritable bowel syndrome [None]
  - Myalgia [None]
  - Chills [None]
  - Speech disorder [None]
  - Arthralgia [None]
  - Dyspnoea [None]
  - Eye disorder [None]
  - Neck pain [None]
  - Nausea [None]

NARRATIVE: CASE EVENT DATE: 20170201
